FAERS Safety Report 16908177 (Version 1)
Quarter: 2019Q4

REPORT INFORMATION
  Report Type: Spontaneous
  Country: US (occurrence: US)
  Receive Date: 20191010
  Receipt Date: 20191010
  Transmission Date: 20200122
  Serious: Yes (Other)
  Sender: FDA-Public Use
  Company Number: None

PATIENT
  Age: 65 Year
  Sex: Female

DRUGS (12)
  1. TYLENOL 500 MG E/S [Concomitant]
  2. FLUCONAZOLE 150 [Concomitant]
     Active Substance: FLUCONAZOLE
  3. RANITIDINE 150 [Concomitant]
     Active Substance: RANITIDINE HYDROCHLORIDE
  4. CRANBERRY CAPSULES [Concomitant]
  5. FUROSEMIDE 20 [Concomitant]
  6. METOPROLOL TARTRATE 25 [Concomitant]
  7. SIROLIMUS. [Suspect]
     Active Substance: SIROLIMUS
     Route: 048
  8. CLONIDINE 0.1 MG [Concomitant]
     Active Substance: CLONIDINE
  9. DOXAZOSIN [Concomitant]
     Active Substance: DOXAZOSIN MESYLATE
  10. ASPIRIN 81 MG [Concomitant]
     Active Substance: ASPIRIN
  11. TACROLIMUS. [Suspect]
     Active Substance: TACROLIMUS
     Indication: RENAL TRANSPLANT
     Route: 048
  12. PROBIOTIC CAPSULE [Concomitant]

REACTIONS (2)
  - Skin exfoliation [None]
  - Therapy change [None]

NARRATIVE: CASE EVENT DATE: 20190625
